FAERS Safety Report 15980330 (Version 1)
Quarter: 2019Q1

REPORT INFORMATION
  Report Type: Spontaneous
  Country: US (occurrence: US)
  Receive Date: 20190219
  Receipt Date: 20190219
  Transmission Date: 20190418
  Serious: Yes (Other)
  Sender: FDA-Public Use
  Company Number: PHEH2019US006997

PATIENT
  Age: 62 Year
  Sex: Female
  Weight: 73.48 kg

DRUGS (6)
  1. LOSARTAN. [Concomitant]
     Active Substance: LOSARTAN
     Indication: HYPERTENSION
     Dosage: 100 MG, QD
     Route: 048
  2. PRAVASTATIN. [Concomitant]
     Active Substance: PRAVASTATIN
     Indication: BLOOD CHOLESTEROL
     Dosage: 20 MG, QD
     Route: 048
  3. ELIQUIS [Concomitant]
     Active Substance: APIXABAN
     Indication: THROMBOSIS
     Dosage: 5 MG, BID (STARTED IN MAR 2017 OR APR 2017)
     Route: 048
     Dates: start: 2017
  4. GLEEVEC [Suspect]
     Active Substance: IMATINIB MESYLATE
     Indication: PRODUCT USED FOR UNKNOWN INDICATION
     Route: 065
  5. AMLODIPINE [Concomitant]
     Active Substance: AMLODIPINE BESYLATE
     Indication: HYPERTENSION
     Dosage: 10 MG, QD
     Route: 048
  6. SUTENT [Suspect]
     Active Substance: SUNITINIB MALATE
     Indication: GASTRIC CANCER
     Dosage: 37.5 MG, QD (FOR 28 DAYS AND THEN 2 WEEKS OFF)
     Route: 048
     Dates: start: 201709

REACTIONS (9)
  - Neoplasm progression [Not Recovered/Not Resolved]
  - Asthenia [Unknown]
  - Aphthous ulcer [Recovered/Resolved]
  - General physical health deterioration [Unknown]
  - Thrombosis [Unknown]
  - Dyspnoea [Not Recovered/Not Resolved]
  - Syncope [Unknown]
  - Inappropriate schedule of product administration [Unknown]
  - Abdominal pain upper [Not Recovered/Not Resolved]

NARRATIVE: CASE EVENT DATE: 201710
